FAERS Safety Report 8593774-X (Version None)
Quarter: 2012Q3

REPORT INFORMATION
  Report Type: 
  Country: None (occurrence: None)
  Receive Date: 20120814
  Receipt Date: 20120809
  Transmission Date: 20120928
  Serious: Yes (Hospitalization, Other)
  Sender: FDA-Public Use
  Company Number: US-ABBOTT-12P-163-0967281-00

PATIENT
  Sex: Female
  Weight: 86.26 kg

DRUGS (2)
  1. HUMIRA [Suspect]
     Indication: PSORIASIS
  2. HUMIRA [Suspect]
     Indication: PSORIATIC ARTHROPATHY
     Dates: start: 20040801, end: 20110801

REACTIONS (5)
  - PAPILLOMA [None]
  - RECTAL PROLAPSE [None]
  - BREAST CANCER [None]
  - NIPPLE EXUDATE BLOODY [None]
  - VAGINAL PROLAPSE [None]
